FAERS Safety Report 7918989-2 (Version None)
Quarter: 2011Q4

REPORT INFORMATION
  Report Type: 
  Country: None (occurrence: None)
  Receive Date: 20111116
  Receipt Date: 20111107
  Transmission Date: 20120403
  Serious: Yes (Other)
  Sender: FDA-Public Use
  Company Number: CA-ASTRAZENECA-2011SE67172

PATIENT
  Age: 57 Year
  Sex: Female

DRUGS (7)
  1. CRESTOR [Suspect]
     Route: 048
  2. PRILOSEC [Concomitant]
     Route: 048
  3. LOVAZA [Concomitant]
  4. CLONAZEPAM [Concomitant]
     Route: 048
  5. COENZYME Q10 [Concomitant]
     Route: 048
  6. LAMOTRIGINE [Concomitant]
     Route: 048
  7. SEROQUEL [Concomitant]
     Route: 048

REACTIONS (4)
  - HEADACHE [None]
  - ARTHRALGIA [None]
  - MIGRAINE [None]
  - MYALGIA [None]
